FAERS Safety Report 8341318-X (Version None)
Quarter: 2012Q2

REPORT INFORMATION
  Report Type: 
  Country: None (occurrence: None)
  Receive Date: 20120507
  Receipt Date: 20120424
  Transmission Date: 20120825
  Serious: Yes (Hospitalization)
  Sender: FDA-Public Use
  Company Number: US-BAYER-2012-033854

PATIENT
  Age: 85 Year
  Sex: Male

DRUGS (1)
  1. NEXAVAR [Suspect]
     Indication: HEPATIC NEOPLASM MALIGNANT
     Dosage: 400 MG, BID
     Dates: start: 20120329, end: 20120401

REACTIONS (8)
  - DYSPEPSIA [None]
  - COUGH [None]
  - OROPHARYNGEAL PAIN [None]
  - VOMITING [None]
  - NAUSEA [None]
  - DEHYDRATION [None]
  - APHAGIA [None]
  - ABDOMINAL PAIN UPPER [None]
